FAERS Safety Report 9791920 (Version 2)
Quarter: 2014Q1

REPORT INFORMATION
  Report Type: Spontaneous
  Country: US (occurrence: US)
  Receive Date: 20140102
  Receipt Date: 20140224
  Transmission Date: 20141002
  Serious: Yes (Other)
  Sender: FDA-Public Use
  Company Number: US-PFIZER INC-2013374149

PATIENT
  Age: 54 Year
  Sex: Female

DRUGS (12)
  1. LYRICA [Suspect]
     Indication: NEURALGIA
     Dosage: 50 MG, 2X/DAY
     Route: 048
     Dates: start: 20080114
  2. LYRICA [Suspect]
     Dosage: 150 MG, 2X/DAY
     Route: 048
     Dates: start: 20131129
  3. LYRICA [Suspect]
     Dosage: 150 MG, 5X/DAY
     Route: 048
     Dates: start: 20131216, end: 20131216
  4. LYRICA [Suspect]
     Dosage: 150 MG, 3X/DAY
     Route: 048
     Dates: start: 20131217, end: 20131218
  5. LYRICA [Suspect]
     Dosage: 150 MG, 2X/DAY
     Route: 048
     Dates: start: 20131219
  6. HCTZ [Concomitant]
     Dosage: 12.5 MG, DAILY
  7. TRAMADOL [Concomitant]
     Dosage: 2 DF, 3X/DAY ( 2 TABS TID)
  8. BABY ASA [Concomitant]
     Dosage: UNK, DAILY
  9. WELLBUTRIN [Concomitant]
     Dosage: 150 MG, DAILY
  10. TOPIRAMATE [Concomitant]
     Dosage: 50 MG, 1X/DAY
  11. CRESTOR [Concomitant]
     Dosage: 5 MG, 1X/DAY
  12. BI-EST [Concomitant]
     Dosage: UNK

REACTIONS (6)
  - Intracranial aneurysm [Unknown]
  - Headache [Unknown]
  - Balance disorder [Unknown]
  - Thinking abnormal [Recovered/Resolved]
  - Hypoaesthesia [Unknown]
  - Trigeminal neuralgia [Unknown]
